FAERS Safety Report 8422538-2 (Version None)
Quarter: 2012Q2

REPORT INFORMATION
  Report Type: 
  Country: None (occurrence: None)
  Receive Date: 20120608
  Receipt Date: 20120604
  Transmission Date: 20120825
  Serious: No
  Sender: FDA-Public Use
  Company Number: US-PFIZER INC-2012135436

PATIENT

DRUGS (1)
  1. GENOTROPIN [Suspect]
     Dosage: 12 MG, UNK

REACTIONS (2)
  - OBESITY [None]
  - SLEEP APNOEA SYNDROME [None]
